FAERS Safety Report 16120362 (Version 1)
Quarter: 2019Q1

REPORT INFORMATION
  Report Type: Spontaneous
  Country: AU (occurrence: AU)
  Receive Date: 20190326
  Receipt Date: 20190326
  Transmission Date: 20190418
  Serious: Yes (Hospitalization)
  Sender: FDA-Public Use
  Company Number: PHHY2019AU068385

PATIENT
  Age: 74 Year
  Sex: Female

DRUGS (1)
  1. AMOXICILLIN. [Suspect]
     Active Substance: AMOXICILLIN
     Indication: TOOTH INFECTION
     Route: 048

REACTIONS (7)
  - Drug hypersensitivity [Unknown]
  - Nausea [Unknown]
  - Hypotension [Unknown]
  - Paraesthesia oral [Unknown]
  - Dizziness [Unknown]
  - Chest pain [Unknown]
  - Erythema [Unknown]
